FAERS Safety Report 23971998 (Version 2)
Quarter: 2024Q2

REPORT INFORMATION
  Report Type: Spontaneous
  Country: CH (occurrence: CH)
  Receive Date: 20240613
  Receipt Date: 20240618
  Transmission Date: 20240716
  Serious: Yes (Hospitalization, Other)
  Sender: FDA-Public Use
  Company Number: None

PATIENT
  Age: 62 Year
  Sex: Male

DRUGS (12)
  1. DIFLUCAN [Suspect]
     Active Substance: FLUCONAZOLE
     Dosage: 200 MILLIGRAM, QD
     Route: 065
     Dates: start: 20240520
  2. PANTOZOL [Suspect]
     Active Substance: PANTOPRAZOLE SODIUM
     Dosage: 20 MILLIGRAM, QD
     Route: 065
     Dates: start: 20240517
  3. PIPERACILLIN SODIUM\TAZOBACTAM SODIUM [Suspect]
     Active Substance: PIPERACILLIN SODIUM\TAZOBACTAM SODIUM
     Dosage: 4.5 GRAM, TID
     Route: 065
     Dates: start: 20240524, end: 20240528
  4. AMPICILLIN TRIHYDRATE\CLAVULANATE POTASSIUM [Suspect]
     Active Substance: AMPICILLIN TRIHYDRATE\CLAVULANATE POTASSIUM
     Dosage: 1.2 GRAM, QID
     Dates: start: 20240514, end: 20240518
  5. BACTRIM [Suspect]
     Active Substance: SULFAMETHOXAZOLE\TRIMETHOPRIM
     Dosage: 360 MILLIGRAM, TID
     Route: 065
     Dates: start: 20240515, end: 20240530
  6. BIKTARVY [Suspect]
     Active Substance: BICTEGRAVIR SODIUM\EMTRICITABINE\TENOFOVIR ALAFENAMIDE FUMARATE
     Dosage: 50/200/25 MG, 1X/D
     Route: 065
     Dates: start: 20240519
  7. HEPARIN [Suspect]
     Active Substance: HEPARIN SODIUM
     Dosage: 400 IU/KG, 1X/DAY (24H)
     Dates: start: 20240514
  8. CLARITHROMYCIN [Suspect]
     Active Substance: CLARITHROMYCIN
     Dosage: 500 MG
     Route: 048
     Dates: start: 20240514
  9. ACETAMINOPHEN [Concomitant]
     Active Substance: ACETAMINOPHEN
     Dosage: MAXIMUM DOSE RECEIVED 1G/D, AS NEEDED (1G 4X/D IN RESERVE)
     Dates: start: 20240514, end: 20240527
  10. ENOXAPARIN SODIUM [Concomitant]
     Active Substance: ENOXAPARIN SODIUM
     Dosage: 40 MILLIGRAM, QD
     Dates: start: 20240514
  11. FOLIC ACID [Concomitant]
     Active Substance: FOLIC ACID
     Dosage: 5 MILLIGRAM, QD
     Dates: start: 20240516
  12. PREDNISONE [Concomitant]
     Active Substance: PREDNISONE
     Dosage: 40 MILLIGRAM, BID
     Dates: start: 20240515

REACTIONS (6)
  - Rash macular [Not Recovered/Not Resolved]
  - Erythema [Not Recovered/Not Resolved]
  - Cell death [Not Recovered/Not Resolved]
  - Alanine aminotransferase increased [Unknown]
  - Blood bilirubin decreased [Unknown]
  - Gamma-glutamyltransferase increased [Unknown]

NARRATIVE: CASE EVENT DATE: 20240523
